FAERS Safety Report 5922195-0 (Version None)
Quarter: 2008Q4

REPORT INFORMATION
  Report Type: 
  Country: None (occurrence: None)
  Receive Date: 20081017
  Receipt Date: 20081007
  Transmission Date: 20090506
  Serious: Yes (Hospitalization, Other)
  Sender: FDA-Public Use
  Company Number: CA-ABBOTT-08P-028-0480837-00

PATIENT
  Sex: Male

DRUGS (1)
  1. HUMIRA [Suspect]
     Indication: CROHN'S DISEASE
     Route: 058
     Dates: start: 20080501, end: 20080901

REACTIONS (7)
  - COUGH [None]
  - CROHN'S DISEASE [None]
  - HERNIA PAIN [None]
  - INJECTION SITE HAEMORRHAGE [None]
  - INJECTION SITE PAIN [None]
  - LOCALISED INTRAABDOMINAL FLUID COLLECTION [None]
  - SUTURE RUPTURE [None]
